FAERS Safety Report 13992984 (Version 1)
Quarter: 2017Q3

REPORT INFORMATION
  Report Type: Spontaneous
  Country: GB (occurrence: GB)
  Receive Date: 20170920
  Receipt Date: 20170920
  Transmission Date: 20171128
  Serious: Yes (Hospitalization, Other)
  Sender: FDA-Public Use
  Company Number: GB-PFIZER INC-2017375244

PATIENT
  Age: 8 Decade
  Sex: Male
  Weight: 86.1 kg

DRUGS (2)
  1. SUTENT [Suspect]
     Active Substance: SUNITINIB MALATE
     Dosage: 34.5 MG, CYCLIC (34.5 MG DAILY)
     Route: 048
     Dates: start: 20140917, end: 20170704
  2. SUTENT [Suspect]
     Active Substance: SUNITINIB MALATE
     Indication: CLEAR CELL RENAL CELL CARCINOMA
     Dosage: 50 MG, CYCLIC (50 MG DAILY)
     Route: 048
     Dates: start: 20140724, end: 20140917

REACTIONS (37)
  - Second primary malignancy [Unknown]
  - Inguinal hernia [Unknown]
  - Skin disorder [Unknown]
  - Arthritis [Unknown]
  - Localised infection [Unknown]
  - Hyperchlorhydria [Unknown]
  - Rectal haemorrhage [Unknown]
  - Post herpetic neuralgia [Unknown]
  - Abdominal pain [Unknown]
  - Blood urine [Unknown]
  - Fatigue [Unknown]
  - Syncope [Recovered/Resolved]
  - Chest pain [Unknown]
  - Blood creatinine increased [Unknown]
  - Ocular hyperaemia [Unknown]
  - Asthenia [Unknown]
  - Muscle mass [Unknown]
  - Basal cell carcinoma [Unknown]
  - Oral pain [Not Recovered/Not Resolved]
  - Flank pain [Unknown]
  - Body temperature increased [Not Recovered/Not Resolved]
  - Infection [Unknown]
  - Glycosylated haemoglobin decreased [Unknown]
  - Proctalgia [Unknown]
  - Balance disorder [Unknown]
  - Orthostatic hypotension [Unknown]
  - Tooth infection [Unknown]
  - Lower respiratory tract infection [Unknown]
  - Hypertension [Unknown]
  - Dizziness [Unknown]
  - Arthropathy [Unknown]
  - Ingrowing nail [Unknown]
  - Neoplasm progression [Unknown]
  - Back pain [Unknown]
  - Blood urea increased [Unknown]
  - Demodicidosis [Unknown]
  - Haematoma [Unknown]

NARRATIVE: CASE EVENT DATE: 20140808
